FAERS Safety Report 8349448-3 (Version None)
Quarter: 2012Q2

REPORT INFORMATION
  Report Type: 
  Country: None (occurrence: None)
  Receive Date: 20120510
  Receipt Date: 20100824
  Transmission Date: 20120825
  Serious: No
  Sender: FDA-Public Use
  Company Number: US-TEVA-2010004522

PATIENT
  Sex: Female

DRUGS (6)
  1. NUVIGIL [Suspect]
     Indication: NARCOLEPSY
     Dosage: 250 MILLIGRAM;
     Route: 048
     Dates: start: 20100814, end: 20100815
  2. PAXIL [Concomitant]
     Indication: DEPRESSION
     Dates: start: 20040101
  3. NUVIGIL [Suspect]
     Indication: SLEEP APNOEA SYNDROME
     Dosage: 250 MILLIGRAM;
     Route: 048
     Dates: start: 20100823, end: 20100824
  4. CELEBREX [Concomitant]
     Indication: ARTHRITIS
     Dates: start: 20040101
  5. OMEPRAZOLE [Concomitant]
     Indication: GASTROOESOPHAGEAL REFLUX DISEASE
     Dates: start: 20040101
  6. ESTRADIOL [Concomitant]
     Indication: HORMONE THERAPY
     Dates: start: 20040101

REACTIONS (1)
  - DYSPHONIA [None]
